FAERS Safety Report 4349827-5 (Version None)
Quarter: 2004Q2

REPORT INFORMATION
  Report Type: 
  Country: None (occurrence: None)
  Receive Date: 20040426
  Receipt Date: 20040412
  Transmission Date: 20050107
  Serious: Yes (Hospitalization)
  Sender: FDA-Public Use
  Company Number: 04P-163-0257049-00

PATIENT
  Age: 76 Year
  Sex: Female
  Weight: 102.0593 kg

DRUGS (6)
  1. HUMIRA [Suspect]
     Indication: RHEUMATOID ARTHRITIS
     Dosage: 40 MG, 1 IN 2 WK, SUBCUTANEOUS
     Route: 058
     Dates: start: 20040201, end: 20040401
  2. RISEDRONATE SODIUM [Concomitant]
  3. DILTIAZEM HYDROCHLORIDE [Concomitant]
  4. ASPIRIN [Concomitant]
  5. IPRATROPIUM BROMIDE [Concomitant]
  6. ADVIR [Concomitant]

REACTIONS (1)
  - EMBOLISM [None]
